FAERS Safety Report 9143148 (Version 1)
Quarter: 2013Q1

REPORT INFORMATION
  Report Type: Spontaneous
  Country: US (occurrence: US)
  Receive Date: 20130306
  Receipt Date: 20130306
  Transmission Date: 20140127
  Serious: No
  Sender: FDA-Public Use
  Company Number: US-ENDO PHARMACEUTICALS INC.-OPCR20120213

PATIENT
  Sex: Female

DRUGS (4)
  1. OPANA ER 20MG [Suspect]
     Indication: PAIN
     Route: 048
     Dates: start: 20120407
  2. OPANA ER [Suspect]
     Indication: PAIN
     Route: 048
     Dates: start: 2011, end: 201204
  3. COUMADIN [Concomitant]
     Indication: HEART VALVE REPLACEMENT
  4. COUMADIN [Concomitant]

REACTIONS (5)
  - Gait disturbance [Recovered/Resolved]
  - Nasopharyngitis [Unknown]
  - Asthenia [Not Recovered/Not Resolved]
  - Decreased appetite [Not Recovered/Not Resolved]
  - Drug ineffective [Not Recovered/Not Resolved]
